FAERS Safety Report 7898615-1 (Version None)
Quarter: 2011Q4

REPORT INFORMATION
  Report Type: 
  Country: None (occurrence: None)
  Receive Date: 20111107
  Receipt Date: 20111107
  Transmission Date: 20120403
  Serious: Yes (Other)
  Sender: FDA-Public Use
  Company Number: None

PATIENT
  Age: 35 Year
  Sex: Female
  Weight: 63.502 kg

DRUGS (2)
  1. BUPROPION HYDROCHLORIDE [Suspect]
     Indication: DEPRESSION
     Dates: start: 20100101, end: 20101231
  2. BUPROPION HYDROCHLORIDE [Suspect]
     Indication: ANXIETY
     Dates: start: 20100101, end: 20101231

REACTIONS (1)
  - TOOTH DISCOLOURATION [None]
